FAERS Safety Report 5213958-8 (Version None)
Quarter: 2007Q1

REPORT INFORMATION
  Report Type: 
  Country: None (occurrence: None)
  Receive Date: 20070122
  Receipt Date: 20070110
  Transmission Date: 20070707
  Serious: Yes (Hospitalization)
  Sender: FDA-Public Use
  Company Number: PHHO2007JP00981

PATIENT
  Age: 80 Year
  Sex: Male
  Weight: 53 kg

DRUGS (4)
  1. DIOVAN [Suspect]
     Indication: HYPERTENSION
     Dosage: 80 MG, QD
     Route: 048
     Dates: start: 20030214, end: 20060314
  2. ASPIRIN [Concomitant]
     Indication: CEREBRAL INFARCTION
     Dosage: 100 MG
     Route: 048
     Dates: start: 20030214, end: 20060328
  3. SERMION [Concomitant]
     Indication: CEREBRAL INFARCTION
     Dosage: 15 MG
     Route: 048
     Dates: start: 20030214, end: 20060328
  4. MADOPAR [Concomitant]
     Indication: PARKINSONISM
     Dates: start: 20030214, end: 20060328

REACTIONS (2)
  - GAIT DISTURBANCE [None]
  - PARKINSON'S DISEASE [None]
